FAERS Safety Report 5138591-8 (Version None)
Quarter: 2006Q4

REPORT INFORMATION
  Report Type: 
  Country: None (occurrence: None)
  Receive Date: 20061030
  Receipt Date: 20060501
  Transmission Date: 20070319
  Serious: Yes (Other)
  Sender: FDA-Public Use
  Company Number: US-BRISTOL-MYERS SQUIBB COMPANY-13362645

PATIENT
  Age: 64 Year
  Sex: Female

DRUGS (3)
  1. ESTRADIOL INJ [Suspect]
     Indication: HORMONE REPLACEMENT THERAPY
  2. MEDROXYPROGESTERONE ACETATE [Suspect]
     Indication: HORMONE REPLACEMENT THERAPY
  3. ALBUTEROL [Concomitant]
     Indication: ASTHMA
     Dosage: 2 PUFFS FOUR TIMES DAILY AS NEEDED.
     Route: 055

REACTIONS (1)
  - BREAST CANCER [None]
